FAERS Safety Report 21501338 (Version 4)
Quarter: 2022Q4

REPORT INFORMATION
  Report Type: Spontaneous
  Country: US (occurrence: US)
  Receive Date: 20221025
  Receipt Date: 20221202
  Transmission Date: 20230113
  Serious: No
  Sender: FDA-Public Use
  Company Number: US-PFIZER INC-202200411367

PATIENT
  Age: 12 Year
  Sex: Male
  Weight: 45.36 kg

DRUGS (2)
  1. GENOTROPIN [Suspect]
     Active Substance: SOMATROPIN
     Indication: Short stature
     Dosage: 1.4 MG, DAILY
  2. GENOTROPIN [Suspect]
     Active Substance: SOMATROPIN
     Dosage: 1.6 MG INJECTS INTO LEG, STOMACH OR BUTT CHEEK PER NIGHT

REACTIONS (5)
  - Drug dose omission by device [Unknown]
  - Device use issue [Unknown]
  - Device information output issue [Unknown]
  - Device mechanical issue [Unknown]
  - Product storage error [Unknown]

NARRATIVE: CASE EVENT DATE: 20220926
